FAERS Safety Report 16569085 (Version 2)
Quarter: 2019Q3

REPORT INFORMATION
  Report Type: Spontaneous
  Country: DE (occurrence: DE)
  Receive Date: 20190713
  Receipt Date: 20190916
  Transmission Date: 20191004
  Serious: Yes (Other)
  Sender: FDA-Public Use
  Company Number: PHHY2019DE158696

PATIENT
  Sex: Male

DRUGS (3)
  1. VALSARTAN HEXAL [Suspect]
     Active Substance: VALSARTAN
     Dosage: 160 MG, UNK
     Route: 065
     Dates: start: 2013, end: 201807
  2. VALSARTAN HEXAL [Suspect]
     Active Substance: VALSARTAN
     Indication: HYPERTENSION
     Dosage: 80 MG, UNK
     Route: 065
     Dates: start: 2012, end: 2013
  3. VALSACOR [Concomitant]
     Active Substance: VALSARTAN
     Indication: PRODUCT USED FOR UNKNOWN INDICATION
     Dosage: 160 MG, UNK
     Route: 065

REACTIONS (7)
  - Flank pain [Unknown]
  - Lymphadenopathy [Unknown]
  - Night sweats [Recovered/Resolved]
  - Folate deficiency [Unknown]
  - Renal cyst [Unknown]
  - Bronchitis [Unknown]
  - Aortic arteriosclerosis [Unknown]

NARRATIVE: CASE EVENT DATE: 201801
